FAERS Safety Report 4383481-1 (Version None)
Quarter: 2004Q2

REPORT INFORMATION
  Report Type: 
  Country: None (occurrence: None)
  Receive Date: 20040623
  Receipt Date: 20040604
  Transmission Date: 20050107
  Serious: Yes (Other)
  Sender: FDA-Public Use
  Company Number: 200412036JP

PATIENT
  Age: 67 Year
  Sex: Male

DRUGS (1)
  1. AMARYL [Suspect]
     Indication: HYPERGLYCAEMIA
     Route: 048
     Dates: start: 20040420, end: 20040420

REACTIONS (1)
  - PANCREATIC CARCINOMA [None]
